FAERS Safety Report 11134243 (Version 2)
Quarter: 2015Q2

REPORT INFORMATION
  Report Type: Spontaneous
  Country: BR (occurrence: BR)
  Receive Date: 20150524
  Receipt Date: 20150621
  Transmission Date: 20150821
  Serious: Yes (Hospitalization, Other)
  Sender: FDA-Public Use
  Company Number: BR-AMGEN-BRASP2015049479

PATIENT
  Age: 63 Year
  Sex: Male
  Weight: 70 kg

DRUGS (2)
  1. ENBREL [Suspect]
     Active Substance: ETANERCEPT
     Indication: RHEUMATOID ARTHRITIS
     Dosage: 1 ML, 1X/WEEK
     Route: 065
  2. CAPTOPRIL. [Concomitant]
     Active Substance: CAPTOPRIL
     Indication: HYPERTENSION
     Dosage: UNK

REACTIONS (9)
  - Sluggishness [Not Recovered/Not Resolved]
  - Influenza [Recovered/Resolved]
  - Hypotonia [Recovered/Resolved]
  - Eating disorder [Not Recovered/Not Resolved]
  - Abasia [Not Recovered/Not Resolved]
  - Hypersomnia [Not Recovered/Not Resolved]
  - Dysstasia [Not Recovered/Not Resolved]
  - Pruritus generalised [Unknown]
  - Back pain [Recovered/Resolved]

NARRATIVE: CASE EVENT DATE: 2015
